FAERS Safety Report 9942248 (Version 1)
Quarter: 2014Q1

REPORT INFORMATION
  Report Type: Spontaneous
  Country: US (occurrence: US)
  Receive Date: 20140303
  Receipt Date: 20140303
  Transmission Date: 20141002
  Serious: No
  Sender: FDA-Public Use
  Company Number: US-ABBVIE-13P-163-1042602-00

PATIENT
  Sex: Male

DRUGS (2)
  1. HUMIRA PEN [Suspect]
     Indication: HIDRADENITIS
     Dates: start: 201002, end: 201204
  2. HUMIRA PEN [Suspect]
     Dates: start: 201211

REACTIONS (2)
  - Off label use [Unknown]
  - Product quality issue [Unknown]
